FAERS Safety Report 14913997 (Version 1)
Quarter: 2018Q2

REPORT INFORMATION
  Report Type: Spontaneous
  Country: DE (occurrence: DE)
  Receive Date: 20180518
  Receipt Date: 20180518
  Transmission Date: 20180711
  Serious: Yes (Hospitalization, Other)
  Sender: FDA-Public Use
  Company Number: DE-BAYER-2018-090701

PATIENT
  Age: 80 Year
  Sex: Female
  Weight: 79 kg

DRUGS (1)
  1. CIPROBAY [Suspect]
     Active Substance: CIPROFLOXACIN
     Dosage: 200 MG/DAY
     Route: 042
     Dates: start: 20180418, end: 20180422

REACTIONS (3)
  - Thrombophlebitis [Not Recovered/Not Resolved]
  - Thrombophlebitis superficial [Not Recovered/Not Resolved]
  - Catheterisation venous [Not Recovered/Not Resolved]

NARRATIVE: CASE EVENT DATE: 20180423
